FAERS Safety Report 21945321 (Version 1)
Quarter: 2023Q1

REPORT INFORMATION
  Report Type: Spontaneous
  Country: US (occurrence: US)
  Receive Date: 20230202
  Receipt Date: 20230202
  Transmission Date: 20230417
  Serious: No
  Sender: FDA-Public Use
  Company Number: US-BAYER-2023A011162

PATIENT
  Age: 47 Year
  Sex: Female

DRUGS (1)
  1. MIRENA [Suspect]
     Active Substance: LEVONORGESTREL
     Dosage: 20?G/DAY
     Route: 015
     Dates: start: 20150722, end: 20230123

REACTIONS (3)
  - Device physical property issue [None]
  - Complication of device removal [Recovered/Resolved]
  - Device use issue [None]

NARRATIVE: CASE EVENT DATE: 20230123
